FAERS Safety Report 5592826-6 (Version None)
Quarter: 2008Q1

REPORT INFORMATION
  Report Type: 
  Country: None (occurrence: None)
  Receive Date: 20080116
  Receipt Date: 20080108
  Transmission Date: 20080703
  Serious: Yes (Other)
  Sender: FDA-Public Use
  Company Number: PHBS2008NL00619

PATIENT
  Age: 63 Year
  Sex: Female

DRUGS (1)
  1. PAMIDRONATE DISODIUM [Suspect]
     Indication: METASTASES TO BONE
     Dates: start: 20050101

REACTIONS (5)
  - BONE SWELLING [None]
  - OSTEONECROSIS [None]
  - SUTURE INSERTION [None]
  - TOOTH EXTRACTION [None]
  - WOUND SECRETION [None]
